FAERS Safety Report 6407523-4 (Version None)
Quarter: 2009Q4

REPORT INFORMATION
  Report Type: 
  Country: None (occurrence: None)
  Receive Date: 20091020
  Receipt Date: 20091008
  Transmission Date: 20100525
  Serious: Yes (Other)
  Sender: FDA-Public Use
  Company Number: MX-ELI_LILLY_AND_COMPANY-MX200910001950

PATIENT
  Age: 14 Year
  Sex: Female

DRUGS (2)
  1. OLANZAPINE + FLUOXETINE HCL [Suspect]
     Indication: MAJOR DEPRESSION
     Dosage: 6 MG, UNKNOWN
     Route: 048
     Dates: start: 20090801, end: 20090101
  2. OLANZAPINE + FLUOXETINE HCL [Suspect]
     Dosage: 25 MG, UNKNOWN
     Route: 048
     Dates: start: 20090801, end: 20090101

REACTIONS (2)
  - COGWHEEL RIGIDITY [None]
  - SOMNOLENCE [None]
